FAERS Safety Report 5518560-6 (Version None)
Quarter: 2007Q4

REPORT INFORMATION
  Report Type: 
  Country: None (occurrence: None)
  Receive Date: 20071115
  Receipt Date: 20071106
  Transmission Date: 20080405
  Serious: Yes (Other)
  Sender: FDA-Public Use
  Company Number: US-PFIZER INC-2007093335

PATIENT
  Sex: Male
  Weight: 81.6 kg

DRUGS (1)
  1. VIAGRA [Suspect]
     Indication: ERECTILE DYSFUNCTION
     Route: 048
     Dates: start: 19970107, end: 20071021

REACTIONS (7)
  - BENIGN PROSTATIC HYPERPLASIA [None]
  - BLOOD CHOLESTEROL INCREASED [None]
  - DEAFNESS [None]
  - DISCOMFORT [None]
  - DISORIENTATION [None]
  - HYPOTENSION [None]
  - TINNITUS [None]
